FAERS Safety Report 10208056 (Version 1)
Quarter: 2014Q2

REPORT INFORMATION
  Report Type: Spontaneous
  Country: US (occurrence: None)
  Receive Date: 20140528
  Receipt Date: 20140528
  Transmission Date: 20141212
  Serious: No
  Sender: FDA-Public Use
  Company Number: None

PATIENT
  Age: 63 Year
  Sex: Male

DRUGS (5)
  1. XTANDI 40 MG [Suspect]
     Indication: PROSTATE CANCER
     Route: 048
     Dates: start: 20140429
  2. DOXYCYCLINE [Concomitant]
  3. ONDANSETRON [Concomitant]
  4. OXYCODONE [Concomitant]
  5. PREDNISONE [Concomitant]

REACTIONS (3)
  - Nausea [None]
  - Vomiting [None]
  - Fatigue [None]
